FAERS Safety Report 24767908 (Version 1)
Quarter: 2024Q4

REPORT INFORMATION
  Report Type: Spontaneous
  Country: GR (occurrence: GR)
  Receive Date: 20241223
  Receipt Date: 20241223
  Transmission Date: 20250114
  Serious: Yes (Other)
  Sender: MERCK
  Company Number: GR-009507513-2412GRC002415

PATIENT
  Age: 70 Year
  Sex: Male

DRUGS (1)
  1. KEYTRUDA [Suspect]
     Active Substance: PEMBROLIZUMAB
     Indication: Malignant melanoma stage III
     Dosage: UNK

REACTIONS (2)
  - Rheumatoid arthritis [Unknown]
  - Adverse event [Unknown]

NARRATIVE: CASE EVENT DATE: 20240101
